FAERS Safety Report 9595988 (Version 1)
Quarter: 2013Q4

REPORT INFORMATION
  Report Type: Spontaneous
  Country: FR (occurrence: FR)
  Receive Date: 20131004
  Receipt Date: 20131004
  Transmission Date: 20140711
  Serious: Yes (Hospitalization)
  Sender: FDA-Public Use
  Company Number: FR-PFIZER INC-2013279050

PATIENT
  Age: 70 Year
  Sex: Male

DRUGS (3)
  1. FLUOROURACILE PFIZER [Suspect]
     Indication: SQUAMOUS CELL CARCINOMA
     Dosage: 22100 MG, DAILY
     Route: 042
     Dates: start: 20130722, end: 20130722
  2. OXYCONTIN [Concomitant]
     Indication: EAR PAIN
     Dosage: 180 MG TWICE
     Dates: start: 20130804
  3. OXYCONTIN [Concomitant]
     Indication: ODYNOPHAGIA

REACTIONS (3)
  - Encephalopathy [Recovering/Resolving]
  - Somnolence [Recovering/Resolving]
  - Disturbance in attention [Recovering/Resolving]
